FAERS Safety Report 25004507 (Version 1)
Quarter: 2025Q1

REPORT INFORMATION
  Report Type: Spontaneous
  Country: DE (occurrence: DE)
  Receive Date: 20250224
  Receipt Date: 20250224
  Transmission Date: 20250409
  Serious: Yes (Life-Threatening)
  Sender: MERCK SHARP & DOHME LLC
  Company Number: DE-009507513-2257530

PATIENT
  Sex: Female

DRUGS (1)
  1. KEYTRUDA [Suspect]
     Active Substance: PEMBROLIZUMAB
     Indication: Triple negative breast cancer

REACTIONS (1)
  - Therapy partial responder [Not Recovered/Not Resolved]
